FAERS Safety Report 19229081 (Version 2)
Quarter: 2021Q2

REPORT INFORMATION
  Report Type: Spontaneous
  Country: VN (occurrence: VN)
  Receive Date: 20210506
  Receipt Date: 20210521
  Transmission Date: 20210717
  Serious: Yes (Hospitalization, Other)
  Sender: FDA-Public Use
  Company Number: VN-009507513-2105VNM000931

PATIENT
  Sex: Male

DRUGS (4)
  1. PEMETREXED. [Concomitant]
     Active Substance: PEMETREXED
     Indication: LUNG ADENOCARCINOMA STAGE IV
     Dosage: 500MG/M2 (CYCLE 9TH)
     Route: 042
     Dates: start: 20200729, end: 20210120
  2. KEYTRUDA [Suspect]
     Active Substance: PEMBROLIZUMAB
     Indication: LUNG ADENOCARCINOMA STAGE IV
     Dosage: 200MG (IVI) 3 WEEKS, 09 CYCLES
     Route: 042
     Dates: start: 20200729, end: 20210120
  3. CARBOPLATIN. [Concomitant]
     Active Substance: CARBOPLATIN
     Indication: LUNG ADENOCARCINOMA STAGE IV
     Dosage: 300MG/M2 (04 CYCLES)
     Route: 042
     Dates: start: 20200729, end: 20201021
  4. CYANOCOBALAMIN;FOLIC ACID [Concomitant]
     Dosage: UNK

REACTIONS (3)
  - Diabetic hyperglycaemic coma [Recovered/Resolved]
  - Vitiligo [Not Recovered/Not Resolved]
  - Pulmonary tuberculosis [Recovering/Resolving]

NARRATIVE: CASE EVENT DATE: 2020
